FAERS Safety Report 23719927 (Version 3)
Quarter: 2024Q2

REPORT INFORMATION
  Report Type: Spontaneous
  Country: FR (occurrence: FR)
  Receive Date: 20240408
  Receipt Date: 20240604
  Transmission Date: 20240716
  Serious: Yes (Other)
  Sender: FDA-Public Use
  Company Number: FR-002147023-NVSC2024FR073689

PATIENT
  Sex: Female

DRUGS (1)
  1. GILENYA [Suspect]
     Active Substance: FINGOLIMOD HYDROCHLORIDE
     Indication: Multiple sclerosis
     Dosage: UNK
     Route: 065

REACTIONS (2)
  - Cervix carcinoma [Unknown]
  - Papilloma viral infection [Unknown]

NARRATIVE: CASE EVENT DATE: 20170101
